FAERS Safety Report 4280661-0 (Version None)
Quarter: 2004Q1

REPORT INFORMATION
  Report Type: 
  Country: None (occurrence: None)
  Receive Date: 20040127
  Receipt Date: 20040115
  Transmission Date: 20041129
  Serious: Yes (Hospitalization, Other)
  Sender: FDA-Public Use
  Company Number: GB-JNJFOC-20031201154

PATIENT
  Age: 14 Year
  Sex: Male
  Weight: 66 kg

DRUGS (2)
  1. CONCERTA [Suspect]
     Indication: ATTENTION DEFICIT/HYPERACTIVITY DISORDER
     Dosage: 36 MG, 1 IN 1 DAY, ORAL
     Route: 048
     Dates: start: 20030101, end: 20030930
  2. CONCERTA [Suspect]
     Indication: PSYCHOMOTOR HYPERACTIVITY
     Dosage: 36 MG, 1 IN 1 DAY, ORAL
     Route: 048
     Dates: start: 20030101, end: 20030930

REACTIONS (5)
  - FALL [None]
  - GRAND MAL CONVULSION [None]
  - MUSCLE RIGIDITY [None]
  - PETIT MAL EPILEPSY [None]
  - PHOTOSENSITIVITY REACTION [None]
